FAERS Safety Report 25464465 (Version 2)
Quarter: 2025Q3

REPORT INFORMATION
  Report Type: Spontaneous
  Country: US (occurrence: US)
  Receive Date: 20250621
  Receipt Date: 20250830
  Transmission Date: 20251021
  Serious: No
  Sender: DR REDDYS
  Company Number: US-DRL-USA-USA/2025/06/008337

PATIENT
  Age: 72 Year

DRUGS (2)
  1. ESTAZOLAM [Suspect]
     Active Substance: ESTAZOLAM
     Indication: Product used for unknown indication
     Route: 048
     Dates: start: 2024
  2. ESTAZOLAM [Suspect]
     Active Substance: ESTAZOLAM
     Dosage: SN NO: LJRQCR2FMZ3S
     Route: 048
     Dates: start: 20250402

REACTIONS (1)
  - Drug ineffective [Unknown]

NARRATIVE: CASE EVENT DATE: 20250405
